FAERS Safety Report 8245852-2 (Version None)
Quarter: 2012Q1

REPORT INFORMATION
  Report Type: 
  Country: None (occurrence: None)
  Receive Date: 20120330
  Receipt Date: 20120316
  Transmission Date: 20120608
  Serious: Yes (Death, Hospitalization)
  Sender: FDA-Public Use
  Company Number: JP-RANBAXY-2012RR-54164

PATIENT
  Age: 75 Year
  Sex: Male

DRUGS (10)
  1. MICAFUNGIN [Suspect]
     Indication: CRYPTOSPORIDIOSIS INFECTION
     Dosage: 150 MG/DAY
     Route: 065
     Dates: start: 20090601
  2. CIPROFLOXACIN [Suspect]
     Indication: BACTERIAL INFECTION
     Dosage: 300 MG, BID
     Route: 065
     Dates: start: 20090601
  3. PREDNISOLONE [Suspect]
     Dosage: 40 MG/DAY
     Route: 065
     Dates: start: 20090601
  4. METHOTREXATE [Suspect]
     Indication: RHEUMATOID ARTHRITIS
     Dosage: 10 MG, 1/WEEK
     Route: 065
     Dates: end: 20090201
  5. SULBACTAM/ AMPICILLIN [Suspect]
     Indication: BRONCHITIS
     Dosage: 3 G, BID
     Route: 065
     Dates: start: 20090101
  6. MEROPENEM [Suspect]
     Indication: BACTERIAL INFECTION
     Dosage: 0.5 G, BID
     Route: 065
     Dates: start: 20090601
  7. PREDNISOLONE [Suspect]
     Indication: RHEUMATOID ARTHRITIS
     Dosage: 5 MG/DAY
     Route: 065
  8. PREDNISOLONE [Suspect]
     Dosage: 30 MG/DAY
     Route: 065
     Dates: start: 20090201
  9. PREDNISOLONE [Suspect]
     Dosage: 25 MG/DAY
     Route: 065
     Dates: start: 20090101, end: 20090601
  10. MICAFUNGIN [Suspect]
     Dosage: 300 MG/DAY
     Route: 065
     Dates: start: 20090601

REACTIONS (4)
  - TRICHOSPORON INFECTION [None]
  - PNEUMONIA CRYPTOCOCCAL [None]
  - KLEBSIELLA INFECTION [None]
  - PSEUDOMONAS INFECTION [None]
